FAERS Safety Report 12884931 (Version 1)
Quarter: 2016Q4

REPORT INFORMATION
  Report Type: Spontaneous
  Country: DE (occurrence: DE)
  Receive Date: 20161026
  Receipt Date: 20161026
  Transmission Date: 20170207
  Serious: Yes (Other)
  Sender: FDA-Public Use
  Company Number: DE-SUN PHARMACEUTICAL INDUSTRIES LTD-2016RR-126329

PATIENT
  Age: 1 Day
  Sex: Female

DRUGS (6)
  1. LORAZEPAM. [Concomitant]
     Active Substance: LORAZEPAM
     Indication: GENERALISED ANXIETY DISORDER
     Dosage: 1 MG/D/ONETIME MEDICATION DUE TO FEAR OF FLYING, 5.3-6.1. GESTATIONAL WEEK
     Route: 064
     Dates: start: 20150826, end: 20150831
  2. IBUPROFEN. [Concomitant]
     Active Substance: IBUPROFEN
     Indication: MIGRAINE
     Dosage: 4800 [MG/WK]/600 TO 2400 MG/D; UP TO TWO TIMES A WEEK, 20.-27. GW
     Route: 064
  3. FOLIO [Concomitant]
     Active Substance: FOLIC ACID
     Indication: PROPHYLAXIS OF NEURAL TUBE DEFECT
     Dosage: 0.4 MG, QD, 0.-38.3 GESTATIONAL WEEK
     Route: 064
     Dates: start: 20150719, end: 20160413
  4. CEFUROXIM [Concomitant]
     Active Substance: CEFUROXIME
     Indication: URINARY TRACT INFECTION
     Dosage: TAKEN ABOUT A WEEK, 31.2.-32.1. GESTATIONAL WEEK
     Route: 064
     Dates: start: 20160223, end: 20160229
  5. SUMATRIPTAN. [Suspect]
     Active Substance: SUMATRIPTAN
     Indication: MIGRAINE
     Dosage: 50 MG/D AS NEEDED; SHE IS TAKING SINCE SEVERAL YEARS, 15 TIMES DURING PREGNANCY, 0.-38.3 GW
     Route: 064
     Dates: start: 20150719, end: 20160413
  6. CITALOPRAM [Suspect]
     Active Substance: CITALOPRAM HYDROBROMIDE
     Indication: GENERALISED ANXIETY DISORDER
     Dosage: 40 [MG/D ]/ IN THE BEGINNING OF PREGNANCY 30 MG/D; AT LEAST SINCE GW 14 40 MG/D UNTIL DELIVERY, 0.-3
     Route: 064
     Dates: start: 20150719, end: 20160413

REACTIONS (2)
  - Low birth weight baby [Recovered/Resolved]
  - Small for dates baby [Recovered/Resolved]

NARRATIVE: CASE EVENT DATE: 20160413
